FAERS Safety Report 9511544 (Version 1)
Quarter: 2013Q3

REPORT INFORMATION
  Report Type: Spontaneous
  Country: US (occurrence: None)
  Receive Date: 20130909
  Receipt Date: 20130909
  Transmission Date: 20140515
  Serious: Yes (Disabling)
  Sender: FDA-Public Use
  Company Number: None

PATIENT
  Age: 62 Year
  Sex: Female
  Weight: 83.92 kg

DRUGS (2)
  1. SPIRIVA [Suspect]
     Indication: WHEEZING
  2. SPIRIVA [Suspect]
     Indication: CHRONIC OBSTRUCTIVE PULMONARY DISEASE

REACTIONS (5)
  - Dry mouth [None]
  - Dry throat [None]
  - Dysphonia [None]
  - Dyspnoea [None]
  - Chronic obstructive pulmonary disease [None]
